FAERS Safety Report 20959049 (Version 1)
Quarter: 2022Q2

REPORT INFORMATION
  Report Type: Spontaneous
  Country: IT (occurrence: IT)
  Receive Date: 20220614
  Receipt Date: 20220614
  Transmission Date: 20220721
  Serious: Yes (Death, Other)
  Sender: FDA-Public Use
  Company Number: IT-CELLTRION HEALTHCARE HUNGARY KFT-2022IT007956

PATIENT

DRUGS (15)
  1. DOXORUBICIN [Suspect]
     Active Substance: DOXORUBICIN
     Indication: High-grade B-cell lymphoma
     Dosage: 50 MG/M2
     Route: 040
  2. METHOTREXATE [Suspect]
     Active Substance: METHOTREXATE
     Indication: High-grade B-cell lymphoma
     Dosage: METHOTREXATE 3 G/M2 IV. OVER 6 HOURS WITH LEUCOVORIN RESCUE THERAPY
     Route: 042
  3. CISPLATIN [Suspect]
     Active Substance: CISPLATIN
     Indication: High-grade B-cell lymphoma
     Dosage: 20 MG/M2/D BY 24-HOUR INFUSION
  4. CYCLOPHOSPHAMIDE [Suspect]
     Active Substance: CYCLOPHOSPHAMIDE
     Indication: High-grade B-cell lymphoma
     Dosage: 500 MG/M2 OVER 1 HOUR INFUSION ON DAY 0 INDUCTION
  5. CYCLOPHOSPHAMIDE [Suspect]
     Active Substance: CYCLOPHOSPHAMIDE
     Dosage: 500 MG/M2 OVER 1 HOUR INFUSION ON DAY 1 INDUCTION
  6. VINCRISTINE [Suspect]
     Active Substance: VINCRISTINE
     Indication: Product used for unknown indication
     Dosage: 2 MG TOTAL DOSE INDUCTION DAY 36
     Route: 040
  7. VINCRISTINE [Suspect]
     Active Substance: VINCRISTINE
     Dosage: 2 MILLIGRAM, 2 MG TOTAL DOSE INDUCTION DAY 0
     Route: 040
  8. RITUXIMAB [Suspect]
     Active Substance: RITUXIMAB
     Indication: Product used for unknown indication
     Dosage: 375 MG/M2 (CONSOLIDATION: DAY 52, 56, 60)
  9. RITUXIMAB [Suspect]
     Active Substance: RITUXIMAB
     Dosage: 375 MILLIGRAM/SQ. METER, 375 MG/M2 (INDUCTION: DAY 2, 14, 29, 36)
  10. CYTARABINE [Suspect]
     Active Substance: CYTARABINE
     Indication: High-grade B-cell lymphoma
     Dosage: CYTARABINE 2 G/M2 IN A 3-HOUR INFUSION, TWICE A DAY (EVERY 12 HOURS)
  11. CYTARABINE [Suspect]
     Active Substance: CYTARABINE
     Dosage: CYTARABINE 750 MG/M2 FOLLOWED 3 HOURS LATER BY 1 G/M2 BY 24-HOUR INFUSION
  12. ETOPOSIDE [Suspect]
     Active Substance: ETOPOSIDE
     Indication: High-grade B-cell lymphoma
     Dosage: 250 MG/M2, EVERY 12 HOURS
  13. CYTARABINE\METHOTREXATE [Suspect]
     Active Substance: CYTARABINE\METHOTREXATE
     Indication: High-grade B-cell lymphoma
     Dosage: METHOTREXATE 12 MG + CYTARABINE 50 MG + STEROIDS INDUCTION DAY 33
     Route: 037
  14. CYTARABINE\METHOTREXATE [Suspect]
     Active Substance: CYTARABINE\METHOTREXATE
     Dosage: METHOTREXATE 12 MG + CYTARABINE 50 MG + STEROIDS INDUCTION DAY 5
     Route: 037
  15. CYTARABINE\METHOTREXATE [Suspect]
     Active Substance: CYTARABINE\METHOTREXATE
     Dosage: METHOTREXATE 12 MG + CYTARABINE 50 MG + STEROIDS INDUCTION DAY 19
     Route: 037

REACTIONS (6)
  - Disease progression [Fatal]
  - Lymphoma [Fatal]
  - COVID-19 [Fatal]
  - Acute respiratory distress syndrome [Fatal]
  - Sepsis [Fatal]
  - Off label use [Unknown]
